FAERS Safety Report 21112879 (Version 1)
Quarter: 2022Q3

REPORT INFORMATION
  Report Type: Report from Study
  Country: US (occurrence: US)
  Receive Date: 20220721
  Receipt Date: 20220721
  Transmission Date: 20221027
  Serious: No
  Sender: FDA-Public Use
  Company Number: US-NOVARTISTESTPH-NVSC2022US165744

PATIENT
  Sex: Male

DRUGS (1)
  1. TOBI [Suspect]
     Active Substance: TOBRAMYCIN
     Indication: Product used for unknown indication
     Dosage: UNK, BID, (300/5 MG/ML, TAKE TWICE DAILY. ON THERAPY 2 WEEKS THEN OFF 2 WEEKS)
     Route: 065

REACTIONS (1)
  - Inappropriate schedule of product administration [Unknown]
